FAERS Safety Report 21372609 (Version 1)
Quarter: 2022Q3

REPORT INFORMATION
  Report Type: Spontaneous
  Country: DE (occurrence: DE)
  Receive Date: 20220924
  Receipt Date: 20220924
  Transmission Date: 20221027
  Serious: Yes (Hospitalization)
  Sender: FDA-Public Use
  Company Number: DE-NOVARTISPH-NVSC2022DE211180

PATIENT
  Age: 54 Year
  Sex: Male
  Weight: 90 kg

DRUGS (3)
  1. DOXYCYCLINE [Suspect]
     Active Substance: DOXYCYCLINE
     Indication: Arthropod bite
     Dosage: UNK (BIS DRITTEN JULI FUR DIE DAUER VON DREISSIG TAGEN EINGENOMMEN)
     Route: 048
     Dates: end: 20210703
  2. CHOLECALCIFEROL [Concomitant]
     Active Substance: CHOLECALCIFEROL
     Indication: Product used for unknown indication
     Dosage: UNK (20000 IE, SONNTAGS EINE)
     Route: 048
  3. GINKGO [Concomitant]
     Active Substance: GINKGO
     Indication: Product used for unknown indication
     Dosage: 120 MG, QD (1-0-0-0)
     Route: 048

REACTIONS (6)
  - Diverticulitis [Unknown]
  - Diarrhoea haemorrhagic [Unknown]
  - Mucous stools [Unknown]
  - Abdominal pain lower [Unknown]
  - Diarrhoea [Unknown]
  - Headache [Unknown]
